FAERS Safety Report 14813152 (Version 2)
Quarter: 2018Q2

REPORT INFORMATION
  Report Type: Spontaneous
  Country: JP (occurrence: JP)
  Receive Date: 20180426
  Receipt Date: 20180501
  Transmission Date: 20180711
  Serious: Yes (Hospitalization)
  Sender: FDA-Public Use
  Company Number: JP-ASTELLAS-2018JP007404

PATIENT
  Age: 75 Year
  Sex: Male

DRUGS (2)
  1. PROPIVERINE [Suspect]
     Active Substance: PROPIVERINE
     Indication: MICTURITION URGENCY
     Route: 065
  2. BETANIS [Suspect]
     Active Substance: MIRABEGRON
     Indication: MICTURITION URGENCY
     Route: 065

REACTIONS (2)
  - Deep vein thrombosis [Recovering/Resolving]
  - Pulmonary embolism [Recovering/Resolving]
